FAERS Safety Report 7312870-8 (Version None)
Quarter: 2011Q1

REPORT INFORMATION
  Report Type: 
  Country: None (occurrence: None)
  Receive Date: 20110224
  Receipt Date: 20110217
  Transmission Date: 20110831
  Serious: Yes (Other)
  Sender: FDA-Public Use
  Company Number: US-RB-016130-10

PATIENT
  Age: 27 Year
  Sex: Male

DRUGS (4)
  1. SUBOXONE [Suspect]
     Route: 060
     Dates: start: 20101001
  2. XANAX [Suspect]
     Indication: ANXIETY
     Dosage: DOSING DETAILS UNKNOWN
     Route: 065
     Dates: end: 20100901
  3. SUBOXONE [Suspect]
     Indication: DRUG DEPENDENCE
     Route: 060
     Dates: start: 20080101, end: 20100101
  4. SUBOXONE [Suspect]
     Route: 060
     Dates: start: 20100101, end: 20100901

REACTIONS (5)
  - DRUG WITHDRAWAL SYNDROME [None]
  - INSOMNIA [None]
  - VISION BLURRED [None]
  - CONVULSION [None]
  - PANIC ATTACK [None]
